FAERS Safety Report 23720100 (Version 2)
Quarter: 2024Q2

REPORT INFORMATION
  Report Type: Spontaneous
  Country: US (occurrence: None)
  Receive Date: 20240408
  Receipt Date: 20240429
  Transmission Date: 20240716
  Serious: No
  Sender: FDA-Public Use
  Company Number: 2024A067774

PATIENT
  Age: 25402 Day
  Sex: Male

DRUGS (1)
  1. SYMBICORT [Suspect]
     Active Substance: BUDESONIDE\FORMOTEROL FUMARATE DIHYDRATE
     Dosage: 160/4.5 MCG, UNKNOWN UNKNOWN
     Route: 055
     Dates: start: 202312

REACTIONS (6)
  - Cough [Unknown]
  - Incorrect dose administered by device [Unknown]
  - Device use issue [Unknown]
  - Device delivery system issue [Unknown]
  - Wrong technique in product usage process [Unknown]
  - Product use issue [Unknown]

NARRATIVE: CASE EVENT DATE: 20240101
